FAERS Safety Report 21096941 (Version 1)
Quarter: 2022Q3

REPORT INFORMATION
  Report Type: Report from Study
  Country: US (occurrence: US)
  Receive Date: 20220718
  Receipt Date: 20220718
  Transmission Date: 20221027
  Serious: No
  Sender: FDA-Public Use
  Company Number: US-BRISTOL-MYERS SQUIBB COMPANY-BMS-2022-039509

PATIENT
  Age: 86 Year
  Sex: Male
  Weight: 79.819 kg

DRUGS (3)
  1. APIXABAN [Suspect]
     Active Substance: APIXABAN
     Indication: Joint swelling
     Dosage: 5 MILLIGRAM
     Route: 048
     Dates: start: 202202
  2. MAGNESIUM CITRATE [Concomitant]
     Active Substance: MAGNESIUM CITRATE
     Indication: Product used for unknown indication
  3. VITAMIN B12 [Concomitant]
     Active Substance: CYANOCOBALAMIN
     Indication: Product used for unknown indication

REACTIONS (7)
  - Epistaxis [Unknown]
  - Asthenia [Unknown]
  - Haemoptysis [Unknown]
  - Productive cough [Unknown]
  - Gait disturbance [Recovering/Resolving]
  - Hypoaesthesia [Unknown]
  - Intentional product use issue [Unknown]
